FAERS Safety Report 17756628 (Version 3)
Quarter: 2020Q4

REPORT INFORMATION
  Report Type: Report from Study
  Country: AU (occurrence: AU)
  Receive Date: 20200507
  Receipt Date: 20201103
  Transmission Date: 20210113
  Serious: Yes (Other)
  Sender: FDA-Public Use
  Company Number: AU-JNJFOC-20200500132

PATIENT
  Age: 55 Year
  Sex: Female

DRUGS (3)
  1. SIMPONI [Suspect]
     Active Substance: GOLIMUMAB
     Route: 058
     Dates: end: 20200701
  2. METHOTREXATE. [Concomitant]
     Active Substance: METHOTREXATE
     Route: 048
  3. SIMPONI [Suspect]
     Active Substance: GOLIMUMAB
     Indication: COLITIS ULCERATIVE
     Route: 058
     Dates: start: 20191105

REACTIONS (6)
  - Therapeutic product effect decreased [Unknown]
  - Off label use [Unknown]
  - Colitis ulcerative [Recovering/Resolving]
  - Inappropriate schedule of product administration [Unknown]
  - Ear infection [Unknown]
  - Skin injury [Recovered/Resolved]

NARRATIVE: CASE EVENT DATE: 201912
